FAERS Safety Report 5965745-0 (Version None)
Quarter: 2008Q4

REPORT INFORMATION
  Report Type: 
  Country: None (occurrence: None)
  Receive Date: 20081125
  Receipt Date: 20081114
  Transmission Date: 20090506
  Serious: Yes (Life-Threatening, Hospitalization)
  Sender: FDA-Public Use
  Company Number: B0545726A

PATIENT
  Age: 23 Year
  Sex: Female

DRUGS (3)
  1. LAMOTRIGINE [Suspect]
     Indication: INTENTIONAL OVERDOSE
     Route: 048
  2. CHLORPHENTERMINE 65MG TAB [Suspect]
     Indication: INTENTIONAL OVERDOSE
     Route: 048
  3. CITALOPRAM HYDROBROMIDE [Suspect]
     Indication: INTENTIONAL OVERDOSE
     Route: 048

REACTIONS (10)
  - AGITATION [None]
  - DEPRESSED LEVEL OF CONSCIOUSNESS [None]
  - ELECTROCARDIOGRAM ABNORMAL [None]
  - ELECTROCARDIOGRAM QRS COMPLEX PROLONGED [None]
  - ELECTROCARDIOGRAM QT PROLONGED [None]
  - METABOLIC ACIDOSIS [None]
  - MULTIPLE DRUG OVERDOSE INTENTIONAL [None]
  - NYSTAGMUS [None]
  - TREMOR [None]
  - VOMITING [None]
